FAERS Safety Report 7310708-6 (Version None)
Quarter: 2011Q1

REPORT INFORMATION
  Report Type: 
  Country: None (occurrence: None)
  Receive Date: 20110224
  Receipt Date: 20100928
  Transmission Date: 20110831
  Serious: No
  Sender: FDA-Public Use
  Company Number: US-BRISTOL-MYERS SQUIBB COMPANY-15303324

PATIENT
  Age: 64 Year
  Sex: Female

DRUGS (1)
  1. LYSODREN [Suspect]
     Indication: ADRENAL CARCINOMA
     Dosage: 1DF:3-6 G/DAY
     Route: 048
     Dates: start: 20020101

REACTIONS (2)
  - NO ADVERSE EVENT [None]
  - EXPIRED DRUG ADMINISTERED [None]
